FAERS Safety Report 9015624 (Version 1)
Quarter: 2013Q1

REPORT INFORMATION
  Report Type: Spontaneous
  Country: CN (occurrence: None)
  Receive Date: 20130102
  Receipt Date: 20130102
  Transmission Date: 20140127
  Serious: Yes (Other)
  Sender: FDA-Public Use
  Company Number: VAL_01229_2012

PATIENT
  Age: 56 Year
  Sex: Male
  Weight: 56 kg

DRUGS (1)
  1. LOTENSIN /00909102/ (LOTENSIN) (NOT SPECIFIED) [Suspect]
     Indication: HYPERTENSION
     Route: 048
     Dates: start: 20090717, end: 20090720

REACTIONS (4)
  - Cough [None]
  - Chest discomfort [None]
  - Asthma [None]
  - Adverse drug reaction [None]
